FAERS Safety Report 8611702-5 (Version None)
Quarter: 2012Q3

REPORT INFORMATION
  Report Type: 
  Country: None (occurrence: None)
  Receive Date: 20120822
  Receipt Date: 20120821
  Transmission Date: 20120928
  Serious: Yes (Other)
  Sender: FDA-Public Use
  Company Number: CO-ROCHE-1101670

PATIENT
  Sex: Female

DRUGS (1)
  1. MYCOPHENOLATE MOFETIL (CELLCEPT) [Suspect]
     Indication: HEART TRANSPLANT
     Route: 048
     Dates: start: 20060924

REACTIONS (1)
  - HEART TRANSPLANT REJECTION [None]
